FAERS Safety Report 7744163-9 (Version None)
Quarter: 2011Q3

REPORT INFORMATION
  Report Type: 
  Country: None (occurrence: None)
  Receive Date: 20110912
  Receipt Date: 20110909
  Transmission Date: 20111222
  Serious: Yes (Other)
  Sender: FDA-Public Use
  Company Number: US-PFIZER INC-2011212942

PATIENT
  Sex: Female

DRUGS (2)
  1. COLESTIPOL HYDROCHLORIDE [Suspect]
     Dosage: UNK
  2. MAXZIDE [Interacting]
     Dosage: UNK

REACTIONS (9)
  - FLUID RETENTION [None]
  - SOMNOLENCE [None]
  - FEELING COLD [None]
  - ASTHENIA [None]
  - TINNITUS [None]
  - MYALGIA [None]
  - DRUG INTERACTION [None]
  - DRUG INEFFECTIVE [None]
  - CHILLS [None]
